FAERS Safety Report 25226407 (Version 5)
Quarter: 2025Q2

REPORT INFORMATION
  Report Type: Spontaneous
  Country: DE (occurrence: DE)
  Receive Date: 20250422
  Receipt Date: 20250606
  Transmission Date: 20250716
  Serious: Yes (Other)
  Sender: SANDOZ
  Company Number: DE-002147023-PHHY2018DE066092

PATIENT
  Sex: Female
  Weight: 58.8 kg

DRUGS (13)
  1. AFINITOR [Suspect]
     Active Substance: EVEROLIMUS
     Dosage: 10 MG, QD, (START DATE: 04-OCT-2021)
     Route: 048
     Dates: start: 20211004
  2. AFINITOR [Suspect]
     Active Substance: EVEROLIMUS
     Indication: Hormone receptor positive HER2 negative breast cancer
     Dosage: 10 MG, QD, (START DATE:04-OCT-2021)
     Route: 048
     Dates: start: 20211004, end: 20220526
  3. FILGRASTIM [Suspect]
     Active Substance: FILGRASTIM
     Indication: Leukopenia
     Route: 065
     Dates: start: 20201026, end: 20201029
  4. FULVESTRANT [Suspect]
     Active Substance: FULVESTRANT
     Indication: Breast cancer metastatic
     Dosage: 250 MG, Q4W, (START DATE: 29-JUL-2020)
     Route: 030
     Dates: start: 20200729, end: 20210916
  5. KISQALI [Suspect]
     Active Substance: RIBOCICLIB SUCCINATE
     Dosage: 200 MG (SCHEMA 21 DAYS INTAKE, THAN 7 DAYS PAUSE)
     Route: 048
     Dates: start: 20180702, end: 20180730
  6. KISQALI [Suspect]
     Active Substance: RIBOCICLIB SUCCINATE
     Dosage: 200 MG, QD (ADMINISTRATION SCHEME 21 DAYS INTAKE, 7 DAYS PAUSE) (START DATE: 27-NOV-2020)
     Route: 048
     Dates: start: 20201127, end: 20210930
  7. KISQALI [Suspect]
     Active Substance: RIBOCICLIB SUCCINATE
     Dosage: 200 MG, QD (DAILY DOSAGE) (SCHEMA 21 DAYS INTAKE, THAN 7 DAYS PAUSE) (START DATE: 06-AUG-2018)
     Route: 048
     Dates: start: 20180806, end: 20201119
  8. KISQALI [Suspect]
     Active Substance: RIBOCICLIB SUCCINATE
     Dosage: 200 MG,QD (ADMINISTRATION SCHEME 21 DAYS INTAKE, 7 DAYS PAUSE) (START DATE: 07-AUG-2018)
     Route: 048
     Dates: start: 20180807, end: 20201119
  9. KISQALI [Suspect]
     Active Substance: RIBOCICLIB SUCCINATE
     Route: 048
     Dates: start: 20201120, end: 20201126
  10. KISQALI [Suspect]
     Active Substance: RIBOCICLIB SUCCINATE
     Indication: Breast cancer metastatic
     Route: 048
     Dates: start: 20180702, end: 20180722
  11. LETROZOLE [Suspect]
     Active Substance: LETROZOLE
     Indication: Breast cancer metastatic
     Dosage: 2.5 MG, QD
     Route: 048
     Dates: start: 20180702, end: 20180730
  12. LETROZOLE [Suspect]
     Active Substance: LETROZOLE
     Indication: Breast cancer metastatic
     Dosage: 2.5 MG, QD
     Route: 048
     Dates: start: 20180702, end: 20200726
  13. LETROZOLE [Suspect]
     Active Substance: LETROZOLE
     Dosage: 2.5 MG, QD (STAR DATE: 06-AUG-2018)
     Route: 048
     Dates: start: 20180806, end: 20200726

REACTIONS (10)
  - Syncope [Recovered/Resolved]
  - Leukopenia [Recovered/Resolved]
  - Leukopenia [Recovered/Resolved]
  - Neutropenia [Recovered/Resolved]
  - Gastrointestinal disorder [Recovered/Resolved]
  - Alopecia [Unknown]
  - Ulcer [Recovered/Resolved]
  - Visual impairment [Unknown]
  - Headache [Recovered/Resolved]
  - Off label use [Unknown]

NARRATIVE: CASE EVENT DATE: 20180730
